FAERS Safety Report 8886237 (Version 2)
Quarter: 2012Q4

REPORT INFORMATION
  Report Type: 
  Country: AU (occurrence: AU)
  Receive Date: 20121105
  Receipt Date: 20121120
  Transmission Date: 20130627
  Serious: Yes (Death, Hospitalization, Other)
  Sender: FDA-Public Use
  Company Number: AU-B.I. PHARMACEUTICALS,INC./RIDGEFIELD-2012-AU-01836AU

PATIENT
  Age: 90 Year
  Sex: Female
  Weight: 56 kg

DRUGS (8)
  1. PRADAXA [Suspect]
     Indication: CEREBROVASCULAR ACCIDENT PROPHYLAXIS
     Dosage: 220 mg
     Dates: start: 20110902
  2. PRADAXA [Suspect]
     Indication: ATRIAL FIBRILLATION
  3. DIGOXIN [Concomitant]
     Dosage: 65.5 mcg
  4. FRUSEMIDE [Concomitant]
     Dosage: 20 mg
  5. THYROXINE [Concomitant]
     Dosage: 100 mcg
     Dates: start: 2003
  6. LIPITOR [Concomitant]
     Dosage: 20 mg
     Dates: start: 2011
  7. NOTEN [Concomitant]
     Dosage: 25 mg
     Dates: start: 2000
  8. KARVEZIDE [Concomitant]
     Dosage: 300/12.5 day
     Dates: start: 2003

REACTIONS (7)
  - Ischaemic stroke [Fatal]
  - Gastric cancer [Unknown]
  - Haemorrhage [Unknown]
  - Melaena [Unknown]
  - Haemoglobin decreased [Unknown]
  - Iron deficiency anaemia [Unknown]
  - Blindness [Unknown]
